FAERS Safety Report 11272783 (Version 1)
Quarter: 2015Q2

REPORT INFORMATION
  Report Type: Spontaneous
  Country: US (occurrence: None)
  Receive Date: 20150625
  Receipt Date: 20150625
  Transmission Date: 20150821
  Serious: No
  Sender: FDA-Public Use
  Company Number: A-US2015-112879

PATIENT
  Age: 64 Year
  Sex: Female

DRUGS (13)
  1. PANTOPRAZOLE (PANTOPRAZOLE) [Concomitant]
     Active Substance: PANTOPRAZOLE SODIUM
  2. REMODULIN [Concomitant]
     Active Substance: TREPROSTINIL
  3. SINGULAIR (MONTELUKAST SODIUM) [Concomitant]
  4. KLOR-CON (POTASSIUM CHLORIDE) [Concomitant]
  5. PREDNISONE. [Concomitant]
     Active Substance: PREDNISONE
  6. OPSUMIT [Suspect]
     Active Substance: MACITENTAN
     Indication: PULMONARY ARTERIAL HYPERTENSION
     Route: 048
     Dates: start: 201410
  7. GABAPENTIN. [Concomitant]
     Active Substance: GABAPENTIN
  8. HUMALOG [Concomitant]
     Active Substance: INSULIN LISPRO
  9. LASIX [Concomitant]
     Active Substance: FUROSEMIDE
  10. CELEXA [Concomitant]
     Active Substance: CITALOPRAM HYDROBROMIDE
  11. TRAMADOL [Concomitant]
     Active Substance: TRAMADOL
  12. DILTIAZEM [Concomitant]
     Active Substance: DILTIAZEM
  13. DIGOXIN. [Concomitant]
     Active Substance: DIGOXIN

REACTIONS (2)
  - Night sweats [None]
  - Rheumatoid arthritis [None]
